FAERS Safety Report 5983644-5 (Version None)
Quarter: 2008Q4

REPORT INFORMATION
  Report Type: 
  Country: None (occurrence: None)
  Receive Date: 20081208
  Receipt Date: 20081202
  Transmission Date: 20090506
  Serious: Yes (Life-Threatening, Hospitalization, Disabling)
  Sender: FDA-Public Use
  Company Number: JP-MERCK-0809USA03220

PATIENT
  Age: 70 Year
  Sex: Female
  Weight: 52 kg

DRUGS (10)
  1. HYZAAR [Suspect]
     Indication: HYPERTENSION
     Route: 048
     Dates: end: 20080528
  2. MAGNESIUM OXIDE [Concomitant]
     Indication: CONSTIPATION
     Route: 048
     Dates: end: 20080528
  3. PURSENNID [Concomitant]
     Indication: CONSTIPATION
     Route: 048
     Dates: end: 20080528
  4. NORVASC [Concomitant]
     Indication: HYPERTENSION
     Route: 048
     Dates: end: 20080528
  5. CARDENALIN [Concomitant]
     Indication: HYPERTENSION
     Route: 048
     Dates: end: 20080528
  6. CARDENALIN [Concomitant]
     Route: 048
     Dates: end: 20080528
  7. KERLONG [Concomitant]
     Indication: HYPERTENSION
     Route: 048
     Dates: end: 20080528
  8. ANAFRANIL [Concomitant]
     Indication: DEPRESSION
     Route: 048
     Dates: end: 20080528
  9. DEPAS [Concomitant]
     Indication: INSOMNIA
     Route: 048
     Dates: end: 20080528
  10. EURODIN [Concomitant]
     Indication: INSOMNIA
     Route: 048
     Dates: end: 20080528

REACTIONS (6)
  - BLOOD CHLORIDE DECREASED [None]
  - BLOOD SODIUM DECREASED [None]
  - CARDIAC FAILURE [None]
  - DEHYDRATION [None]
  - DEPRESSED LEVEL OF CONSCIOUSNESS [None]
  - FALL [None]
